FAERS Safety Report 13899319 (Version 1)
Quarter: 2017Q3

REPORT INFORMATION
  Report Type: Report from Study
  Country: US (occurrence: US)
  Receive Date: 20170824
  Receipt Date: 20170824
  Transmission Date: 20171127
  Serious: Yes (Other)
  Sender: FDA-Public Use
  Company Number: PHHO2005US021430

PATIENT

DRUGS (2)
  1. TYVERB [Suspect]
     Active Substance: LAPATINIB
     Indication: NEOPLASM MALIGNANT
     Dosage: 1500 MG, QD
     Route: 065
  2. LETROZOLE. [Concomitant]
     Active Substance: LETROZOLE
     Indication: NEOPLASM MALIGNANT
     Dosage: UNK
     Route: 065

REACTIONS (1)
  - Diarrhoea [Unknown]
